FAERS Safety Report 5084714-9 (Version None)
Quarter: 2006Q3

REPORT INFORMATION
  Report Type: 
  Country: None (occurrence: None)
  Receive Date: 20060815
  Receipt Date: 20060809
  Transmission Date: 20061208
  Serious: Yes (Death)
  Sender: FDA-Public Use
  Company Number: 2006-143266-NL

PATIENT
  Age: 66 Year
  Sex: Male

DRUGS (14)
  1. DANAPAROID SODIUM [Suspect]
     Indication: DISSEMINATED INTRAVASCULAR COAGULATION
     Dosage: INTRAVENOUS (NOS)
     Route: 042
     Dates: start: 20060314, end: 20060324
  2. DOPAMINE HCL [Concomitant]
  3. CEFTAZIDIME [Concomitant]
  4. AMIKACIN SULFATE [Concomitant]
  5. FLURBIPROFEN AXETIL [Concomitant]
  6. GLYCEOL [Concomitant]
  7. CARBAZOCHROME SODIUM SULFONATE [Concomitant]
  8. TRANEXAMIC ACID [Concomitant]
  9. IMMUNE GLOBULIN INTRAVENOUS (HUMAN) [Concomitant]
  10. CEFOZOPRAN HYDROCHLORIDE [Concomitant]
  11. PRIMAXIN [Concomitant]
  12. CLINDAMYCIN [Concomitant]
  13. METHYLPREDNISOLONE SODIUM SUCCINATE [Concomitant]
  14. FLUCONAZOLE [Concomitant]

REACTIONS (3)
  - ACUTE MYELOID LEUKAEMIA [None]
  - CEREBRAL HAEMORRHAGE [None]
  - SEPSIS [None]
